FAERS Safety Report 26214900 (Version 1)
Quarter: 2025Q4

REPORT INFORMATION
  Report Type: Spontaneous
  Country: US (occurrence: None)
  Receive Date: 20251230
  Receipt Date: 20251230
  Transmission Date: 20260119
  Serious: Yes (Other)
  Sender: AMERICAN REGENT
  Company Number: US-AMERICAN REGENT INC-2025004506

PATIENT
  Age: 88 Year
  Sex: Female

DRUGS (11)
  1. OLANZAPINE [Suspect]
     Active Substance: OLANZAPINE
     Indication: Delirium
     Dosage: 5 MILLIGRAM, SINGLE, AT 01:34 HOURS IN LEFT THIGH
  2. OLANZAPINE [Suspect]
     Active Substance: OLANZAPINE
     Indication: Agitation
     Dosage: 5 MILLIGRAM, SINGLE, AT 05:52 HOURS IN LEFT THIGH
  3. DEXMEDETOMIDINE [Suspect]
     Active Substance: DEXMEDETOMIDINE
     Indication: Agitation
     Dosage: 120 MICROGRAM, SINGLE, AT 17:11 HOURS
  4. HEPARIN [Suspect]
     Active Substance: HEPARIN SODIUM
     Indication: Acute myocardial infarction
     Dosage: 60 UNITS/KG
     Route: 040
  5. HEPARIN [Suspect]
     Active Substance: HEPARIN SODIUM
     Dosage: 12 UNITS/KG/HR
     Route: 041
  6. CLOPIDOGREL [Suspect]
     Active Substance: CLOPIDOGREL BISULFATE
     Indication: Antiplatelet therapy
     Dosage: 600 MILLIGRAM, LOADING DOSE
     Route: 065
  7. CLOPIDOGREL [Suspect]
     Active Substance: CLOPIDOGREL BISULFATE
     Dosage: 75 MILLIGRAM, QD
     Route: 065
  8. ASPIRIN [Suspect]
     Active Substance: ASPIRIN
     Indication: Antiplatelet therapy
     Dosage: 324 MILLIGRAM, LOADING DOSE
     Route: 065
  9. ASPIRIN [Suspect]
     Active Substance: ASPIRIN
     Dosage: 81 MILLIGRAM, QD
     Route: 065
  10. ZIPRASIDONE [Suspect]
     Active Substance: ZIPRASIDONE
     Indication: Delirium
     Dosage: 10 MILLIGRAM, SINGLE, AT 06:17 HOURS IN RIGHT THIGH
  11. ZIPRASIDONE [Suspect]
     Active Substance: ZIPRASIDONE
     Indication: Agitation
     Dosage: 10 MILLIGRAM, SINGLE, AT 23:07 HOURS IN RIGHT DELTOID

REACTIONS (5)
  - Atrial fibrillation [Unknown]
  - Electrocardiogram QT prolonged [Unknown]
  - Haematoma muscle [Unknown]
  - Haemoglobin decreased [Unknown]
  - Product use in unapproved indication [Unknown]
